FAERS Safety Report 9376944 (Version 1)
Quarter: 2013Q2

REPORT INFORMATION
  Report Type: Spontaneous
  Country: US (occurrence: None)
  Receive Date: 20130628
  Receipt Date: 20130628
  Transmission Date: 20140414
  Serious: Yes (Hospitalization, Other)
  Sender: FDA-Public Use
  Company Number: None

PATIENT
  Age: 64 Year
  Sex: Male
  Weight: 78.6 kg

DRUGS (1)
  1. VANCOMYCIN [Suspect]
     Route: 042
     Dates: start: 20130531, end: 20130621

REACTIONS (3)
  - Renal failure acute [None]
  - Renal failure acute [None]
  - Poor venous access [None]
